FAERS Safety Report 8075344-5 (Version None)
Quarter: 2012Q1

REPORT INFORMATION
  Report Type: 
  Country: None (occurrence: None)
  Receive Date: 20120120
  Receipt Date: 20120113
  Transmission Date: 20120608
  Serious: Yes (Hospitalization, Other)
  Sender: FDA-Public Use
  Company Number: 2012SP002594

PATIENT
  Sex: Female

DRUGS (3)
  1. VICTRELIS [Suspect]
     Dosage: 2 DF; TID; UNK
     Dates: start: 20111016
  2. PEG-INTRON [Suspect]
     Indication: HEPATITIS C
     Dates: start: 20111111
  3. RIBAVIRIN [Suspect]
     Indication: HEPATITIS C
     Dates: start: 20111111

REACTIONS (6)
  - AMNESIA [None]
  - DISORIENTATION [None]
  - NAUSEA [None]
  - ANXIETY [None]
  - CONVULSION [None]
  - HEADACHE [None]
